FAERS Safety Report 12199492 (Version 1)
Quarter: 2016Q1

REPORT INFORMATION
  Report Type: Spontaneous
  Country: US (occurrence: US)
  Receive Date: 20160322
  Receipt Date: 20160322
  Transmission Date: 20160526
  Serious: Yes (Other)
  Sender: FDA-Public Use
  Company Number: US-PAR PHARMACEUTICAL COMPANIES-2016SCPR015255

PATIENT

DRUGS (1)
  1. ONDANSETRON [Suspect]
     Active Substance: ONDANSETRON
     Indication: PRODUCT USED FOR UNKNOWN INDICATION
     Dosage: 58 DF (36 MG/KG), UNKNOWN
     Route: 048

REACTIONS (8)
  - Depressed level of consciousness [Unknown]
  - Pupils unequal [Unknown]
  - Respiratory failure [Unknown]
  - Hypotension [Unknown]
  - Electrocardiogram QT prolonged [Recovered/Resolved]
  - Overdose [Unknown]
  - Toxicity to various agents [Unknown]
  - Serotonin syndrome [Unknown]
